FAERS Safety Report 6577243-4 (Version None)
Quarter: 2010Q1

REPORT INFORMATION
  Report Type: 
  Country: None (occurrence: None)
  Receive Date: 20100210
  Receipt Date: 20100202
  Transmission Date: 20100710
  Serious: Yes (Other)
  Sender: FDA-Public Use
  Company Number: US-ABBOTT-10P-163-0624264-00

PATIENT
  Sex: Female

DRUGS (11)
  1. HUMIRA [Suspect]
     Indication: RHEUMATOID ARTHRITIS
     Dates: start: 20080101, end: 20100114
  2. METHOTREXATE [Concomitant]
     Indication: RHEUMATOID ARTHRITIS
  3. ATENOLOL [Concomitant]
     Indication: CARDIAC VALVE DISEASE
     Dosage: TAKES ONE OR HALF A TAB A DAY DEPENDS ON BLOOD PRESSURE
  4. VITAMIN C [Concomitant]
     Indication: VITAMIN SUPPLEMENTATION
     Route: 048
  5. TRAZODONE [Concomitant]
     Indication: INSOMNIA
  6. XANAX [Concomitant]
     Indication: BACK PAIN
  7. ESTRADIOL [Concomitant]
     Indication: HORMONE REPLACEMENT THERAPY
  8. PROZAC [Concomitant]
     Indication: DRUG USE FOR UNKNOWN INDICATION
  9. FOLIC ACID [Concomitant]
     Indication: VITAMIN SUPPLEMENTATION
  10. LEVOTHYROXINE SODIUM [Concomitant]
     Indication: HYPOTHYROIDISM
  11. PERCOCET [Concomitant]
     Indication: BACK PAIN

REACTIONS (15)
  - ABASIA [None]
  - ARTHRALGIA [None]
  - DIZZINESS [None]
  - DYSPNOEA [None]
  - EMPHYSEMA [None]
  - NAUSEA [None]
  - ORAL DISORDER [None]
  - OROPHARYNGEAL PAIN [None]
  - PAIN [None]
  - PHARYNGEAL OEDEMA [None]
  - PHARYNGITIS STREPTOCOCCAL [None]
  - THROAT TIGHTNESS [None]
  - TONGUE BLISTERING [None]
  - TREMOR [None]
  - VISUAL IMPAIRMENT [None]
